FAERS Safety Report 17240006 (Version 1)
Quarter: 2020Q1

REPORT INFORMATION
  Report Type: Report from Study
  Country: RU (occurrence: RU)
  Receive Date: 20200107
  Receipt Date: 20200107
  Transmission Date: 20200409
  Serious: Yes (Hospitalization)
  Sender: FDA-Public Use
  Company Number: RU-AMGEN-RUSNI2020000234

PATIENT
  Age: 64 Year
  Sex: Female
  Weight: 72.5 kg

DRUGS (9)
  1. EPOETIN ALFA [Concomitant]
     Active Substance: ERYTHROPOIETIN
     Dosage: 2500 UNK
     Route: 042
     Dates: start: 20180903
  2. CINACALCET HCL [Suspect]
     Active Substance: CINACALCET HYDROCHLORIDE
     Indication: HYPERPARATHYROIDISM SECONDARY
     Dosage: 30 MILLIGRAM
     Route: 048
     Dates: start: 20180122
  3. ETELCALCETIDE [Suspect]
     Active Substance: ETELCALCETIDE
     Indication: HYPERPARATHYROIDISM SECONDARY
     Dosage: 5 MILLIGRAM
     Route: 042
     Dates: start: 20180827
  4. SEVELAMER [Concomitant]
     Active Substance: SEVELAMER
     Dosage: 800 MILLIGRAM
     Route: 048
     Dates: start: 20180831
  5. ENALAPRIL [Concomitant]
     Active Substance: ENALAPRIL
     Dosage: 20 MILLIGRAM
     Route: 048
     Dates: start: 20180122, end: 20181201
  6. SOTALOL. [Concomitant]
     Active Substance: SOTALOL
     Dosage: 60 MILLIGRAM
     Route: 048
     Dates: start: 20180122
  7. NIFEDIPINE XL [Concomitant]
     Active Substance: NIFEDIPINE
     Dosage: 30 MILLIGRAM
     Route: 048
     Dates: start: 20180201, end: 20181201
  8. OMEPRAZOL [OMEPRAZOLE] [Concomitant]
     Active Substance: OMEPRAZOLE
     Dosage: 20 MILLIGRAM
     Route: 048
     Dates: start: 20180122
  9. ENOXAPARIN SODIUM. [Concomitant]
     Active Substance: ENOXAPARIN SODIUM
     Dosage: 4000 UNK
     Route: 042
     Dates: start: 20180418

REACTIONS (1)
  - Parathyroidectomy [Recovered/Resolved]

NARRATIVE: CASE EVENT DATE: 20181126
